FAERS Safety Report 25870458 (Version 1)
Quarter: 2025Q4

REPORT INFORMATION
  Report Type: Spontaneous
  Country: US (occurrence: US)
  Receive Date: 20251001
  Receipt Date: 20251001
  Transmission Date: 20260119
  Serious: No
  Sender: SANOFI AVENTIS
  Company Number: US-SA-2025SA289429

PATIENT

DRUGS (1)
  1. FERRLECIT [Suspect]
     Active Substance: SODIUM FERRIC GLUCONATE COMPLEX
     Dosage: 250MG IN 130ML OVER 60 MINUTES

REACTIONS (4)
  - Paraesthesia [Unknown]
  - Joint stiffness [Unknown]
  - Nausea [Unknown]
  - Back pain [Unknown]
